FAERS Safety Report 4988360-4 (Version None)
Quarter: 2006Q2

REPORT INFORMATION
  Report Type: 
  Country: None (occurrence: None)
  Receive Date: 20060426
  Receipt Date: 20060417
  Transmission Date: 20061013
  Serious: No
  Sender: FDA-Public Use
  Company Number: TPA2006A00679

PATIENT
  Age: 57 Year
  Sex: Male
  Weight: 58.9676 kg

DRUGS (5)
  1. ROZEREM [Suspect]
     Indication: INSOMNIA
     Dosage: SEE IMAGE
     Route: 048
     Dates: start: 20060414, end: 20060414
  2. ROZEREM [Suspect]
     Indication: INSOMNIA
     Dosage: SEE IMAGE
     Route: 048
     Dates: start: 20060416
  3. LUNESTA [Suspect]
     Indication: INSOMNIA
     Dosage: 2 TAB., QHS, PER ORAL
     Route: 048
     Dates: start: 20060201
  4. LEXAPRO [Suspect]
     Indication: DEPRESSION
     Dosage: 10 MG, 2 IN 1 D, PER ORAL
     Route: 048
     Dates: start: 20060301
  5. XANAX (ALPRAZOLAM) (0.25 MILLIGRAM) [Concomitant]

REACTIONS (3)
  - DEPRESSION [None]
  - DRUG INEFFECTIVE [None]
  - FEELING JITTERY [None]
